FAERS Safety Report 10184742 (Version 3)
Quarter: 2014Q2

REPORT INFORMATION
  Report Type: Spontaneous
  Country: JP (occurrence: JP)
  Receive Date: 20140521
  Receipt Date: 20140604
  Transmission Date: 20141212
  Serious: Yes (Hospitalization)
  Sender: FDA-Public Use
  Company Number: JP-JNJFOC-20140511826

PATIENT
  Age: 63 Year
  Sex: Male

DRUGS (3)
  1. SOVRIAD [Suspect]
     Indication: CHRONIC HEPATITIS C
     Route: 048
  2. PEGASYS [Suspect]
     Indication: CHRONIC HEPATITIS C
     Route: 058
  3. REBETOL [Suspect]
     Indication: CHRONIC HEPATITIS C
     Route: 048

REACTIONS (1)
  - Pneumonia [Recovering/Resolving]
